FAERS Safety Report 22223981 (Version 4)
Quarter: 2023Q2

REPORT INFORMATION
  Report Type: Spontaneous
  Country: US (occurrence: US)
  Receive Date: 20230418
  Receipt Date: 20230601
  Transmission Date: 20230722
  Serious: Yes (Hospitalization, Other)
  Sender: FDA-Public Use
  Company Number: US-PFIZER INC-PV202300069820

PATIENT
  Age: 70 Year
  Sex: Female
  Weight: 88.9 kg

DRUGS (2)
  1. XELJANZ XR [Suspect]
     Active Substance: TOFACITINIB CITRATE
     Dosage: 11 MG
  2. XELJANZ XR [Suspect]
     Active Substance: TOFACITINIB CITRATE
     Dosage: 11 MG, ALTERNATE DAY

REACTIONS (11)
  - Localised infection [Unknown]
  - Infection [Unknown]
  - Rheumatoid arthritis [Unknown]
  - Neoplasm malignant [Unknown]
  - Intentional dose omission [Unknown]
  - Gait disturbance [Unknown]
  - Confusional state [Unknown]
  - Accident [Unknown]
  - Chills [Unknown]
  - Piloerection [Unknown]
  - Anxiety [Recovered/Resolved]

NARRATIVE: CASE EVENT DATE: 20230505
